FAERS Safety Report 9012536 (Version 2)
Quarter: 2013Q2

REPORT INFORMATION
  Report Type: Report from Study
  Country: JP (occurrence: JP)
  Receive Date: 20130114
  Receipt Date: 20130404
  Transmission Date: 20140414
  Serious: Yes (Other)
  Sender: FDA-Public Use
  Company Number: JP-PFIZER INC-2013014643

PATIENT
  Age: 81 Year
  Sex: Female

DRUGS (6)
  1. FOSPHENYTOIN SODIUM [Suspect]
     Indication: STATUS EPILEPTICUS
     Dosage: 7.5 MG/MIN
     Dates: start: 20120914
  2. ALEVIATIN [Concomitant]
     Dosage: 750 MG, 1X/DAY
     Dates: start: 20120912, end: 20120912
  3. ALEVIATIN [Concomitant]
     Dosage: 500 MG, 1X/DAY
     Dates: start: 20120913, end: 20120913
  4. HORIZON [Concomitant]
     Dosage: 5 MG, 1X/DAY
     Dates: start: 20120912, end: 20120913
  5. DEPAKENE [Concomitant]
     Dosage: 800 MG, 1X/DAY
     Route: 048
     Dates: start: 20120915
  6. KEPPRA [Concomitant]

REACTIONS (1)
  - Respiratory tract infection [Recovered/Resolved]
